FAERS Safety Report 7808014-6 (Version None)
Quarter: 2011Q4

REPORT INFORMATION
  Report Type: 
  Country: None (occurrence: None)
  Receive Date: 20111011
  Receipt Date: 20111011
  Transmission Date: 20120403
  Serious: Yes (Life-Threatening, Hospitalization, Disabling, Other)
  Sender: FDA-Public Use
  Company Number: None

PATIENT
  Age: 80 Year
  Sex: Male
  Weight: 81.646 kg

DRUGS (1)
  1. CUBICIN [Suspect]
     Dates: start: 20110803, end: 20110803

REACTIONS (1)
  - EOSINOPHILIC PNEUMONIA [None]
